FAERS Safety Report 5313278-7 (Version None)
Quarter: 2007Q2

REPORT INFORMATION
  Report Type: 
  Country: None (occurrence: None)
  Receive Date: 20070501
  Receipt Date: 20070426
  Transmission Date: 20071010
  Serious: Yes (Death, Hospitalization, Other)
  Sender: FDA-Public Use
  Company Number: PHMT2007CA01123

PATIENT
  Age: 12 Year
  Sex: Male

DRUGS (1)
  1. RITALIN [Suspect]
     Route: 048

REACTIONS (9)
  - GAIT DISTURBANCE [None]
  - HEPATIC NEOPLASM MALIGNANT [None]
  - LIVER OPERATION [None]
  - LOWER LIMB FRACTURE [None]
  - METASTASES TO BONE [None]
  - METASTASIS [None]
  - PAIN [None]
  - SURGERY [None]
  - UPPER LIMB FRACTURE [None]
